FAERS Safety Report 8190272 (Version 2)
Quarter: 2012Q4

REPORT INFORMATION
  Report Type: 
  Country: IE (occurrence: IE)
  Receive Date: 20111019
  Receipt Date: 20121022
  Transmission Date: 20130627
  Serious: Yes (Other)
  Sender: FDA-Public Use
  Company Number: IE-ROCHE-1005156

PATIENT
  Sex: Male

DRUGS (3)
  1. LARIAM [Suspect]
     Indication: MALARIA
     Route: 065
     Dates: start: 20031201, end: 20040628
  2. LARIAM [Suspect]
     Route: 065
     Dates: start: 20050509, end: 20051219
  3. LARIAM [Suspect]
     Route: 065
     Dates: start: 20090518, end: 20091012

REACTIONS (16)
  - Anxiety [Not Recovered/Not Resolved]
  - Paranoia [Not Recovered/Not Resolved]
  - Anger [Not Recovered/Not Resolved]
  - Suicidal ideation [Not Recovered/Not Resolved]
  - Amnesia [Not Recovered/Not Resolved]
  - Personality change [Not Recovered/Not Resolved]
  - Anger [Unknown]
  - Anger [Not Recovered/Not Resolved]
  - Memory impairment [Unknown]
  - Cold sweat [Unknown]
  - Nightmare [Unknown]
  - Stress [Unknown]
  - Apathy [Unknown]
  - Sleep disorder [Unknown]
  - Apathy [Unknown]
  - Psychiatric symptom [Unknown]
